FAERS Safety Report 25168425 (Version 4)
Quarter: 2025Q2

REPORT INFORMATION
  Report Type: Spontaneous
  Country: US (occurrence: US)
  Receive Date: 20250407
  Receipt Date: 20250507
  Transmission Date: 20250717
  Serious: Yes (Other)
  Sender: JOHNSON AND JOHNSON
  Company Number: US-JNJFOC-20250321836

PATIENT
  Age: 74 Year
  Sex: Female

DRUGS (18)
  1. XARELTO [Suspect]
     Active Substance: RIVAROXABAN
     Indication: Thrombosis prophylaxis
     Route: 048
     Dates: start: 20250221, end: 20250307
  2. BIOTIN [Concomitant]
     Active Substance: BIOTIN
     Indication: Product used for unknown indication
  3. VITAMIN D [Concomitant]
     Active Substance: VITAMIN D NOS
     Indication: Product used for unknown indication
  4. Culturelle (Probiotic) [Concomitant]
     Indication: Product used for unknown indication
  5. ALKA SELTZER [ACETYLSALICYLIC ACID] [Concomitant]
     Indication: Red blood cell abnormality
  6. AMPICILLIN [Concomitant]
     Active Substance: AMPICILLIN
     Indication: Urticaria
  7. AMOXICILLIN [Concomitant]
     Active Substance: AMOXICILLIN
     Indication: Urticaria
  8. BACITRACIN [Concomitant]
     Active Substance: BACITRACIN
     Indication: Rash
  9. ERYTHROMYCIN [Concomitant]
     Active Substance: ERYTHROMYCIN
     Indication: Urticaria
  10. ERYTHROMYCIN STEARATE [Concomitant]
     Active Substance: ERYTHROMYCIN STEARATE
     Indication: Urticaria
  11. MECLIZINE [Concomitant]
     Active Substance: MECLIZINE HYDROCHLORIDE
     Indication: Vomiting
  12. MEPERIDINE [Concomitant]
     Active Substance: MEPERIDINE
     Indication: Hallucination
  13. MEPERIDINE [Concomitant]
     Active Substance: MEPERIDINE
     Indication: Aggression
  14. PENICILLIN G SODIUM [Concomitant]
     Active Substance: PENICILLIN G SODIUM
     Indication: Product used for unknown indication
  15. SERTRALINE HYDROCHLORIDE [Concomitant]
     Active Substance: SERTRALINE HYDROCHLORIDE
     Indication: Product used for unknown indication
  16. TETRACYCLINE [Concomitant]
     Active Substance: TETRACYCLINE
     Indication: Urticaria
  17. TOBRAMYCIN [Concomitant]
     Active Substance: TOBRAMYCIN
     Indication: Ocular discomfort
  18. VIBRAMYCIN [Concomitant]
     Active Substance: DOXYCYCLINE
     Indication: Urticaria

REACTIONS (23)
  - Cytokine release syndrome [Unknown]
  - Thrombocytopenia [Unknown]
  - Syncope [Unknown]
  - Vomiting [Unknown]
  - Diarrhoea [Unknown]
  - Asthenia [Unknown]
  - Dizziness [Unknown]
  - Pallor [Unknown]
  - Contusion [Unknown]
  - Headache [Unknown]
  - Confusional state [Recovered/Resolved]
  - Tachycardia [Unknown]
  - Bladder pain [Unknown]
  - Adverse drug reaction [Recovered/Resolved]
  - Fatigue [Recovered/Resolved]
  - Tremor [Recovered/Resolved]
  - Chills [Recovered/Resolved]
  - Pyrexia [Unknown]
  - Insomnia [Unknown]
  - Nausea [Unknown]
  - Anxiety [Unknown]
  - Lip dry [Unknown]
  - Pelvic pain [Unknown]

NARRATIVE: CASE EVENT DATE: 20250101
